FAERS Safety Report 11908580 (Version 1)
Quarter: 2016Q1

REPORT INFORMATION
  Report Type: Spontaneous
  Country: TR (occurrence: TR)
  Receive Date: 20160111
  Receipt Date: 20160111
  Transmission Date: 20160526
  Serious: Yes (Death, Other)
  Sender: FDA-Public Use
  Company Number: TR-MYLANLABS-2016M1000864

PATIENT

DRUGS (5)
  1. CYTARABINE. [Concomitant]
     Active Substance: CYTARABINE
     Indication: ACUTE MYELOID LEUKAEMIA
     Dosage: 1 G/M2/DAY FOR 5 DAYS
     Route: 065
  2. SUNITINIB [Suspect]
     Active Substance: SUNITINIB
     Indication: ACUTE MYELOID LEUKAEMIA
     Dosage: 15MG/M2/DAY DOSE REDUCED TO 7.5 MG/M2/DAY
     Route: 065
  3. SUNITINIB [Suspect]
     Active Substance: SUNITINIB
     Dosage: 7.5 MG/M2/DAY
     Route: 065
  4. SORAFENIB [Suspect]
     Active Substance: SORAFENIB
     Indication: ACUTE MYELOID LEUKAEMIA
     Dosage: 200MG/M2/DAY
     Route: 065
  5. CLOFARABINE [Concomitant]
     Active Substance: CLOFARABINE
     Indication: ACUTE MYELOID LEUKAEMIA
     Dosage: 40 MG/M2/DAY FOR 5 DAYS
     Route: 065

REACTIONS (7)
  - Gastrointestinal haemorrhage [Unknown]
  - Hypocalcaemia [Unknown]
  - Neutropenic sepsis [Fatal]
  - Hypertension [Unknown]
  - Pancytopenia [Unknown]
  - Hypokalaemia [Unknown]
  - Pulmonary haemorrhage [Unknown]
